FAERS Safety Report 8617250 (Version 4)
Quarter: 2013Q1

REPORT INFORMATION
  Report Type: Report from Study
  Country: FR (occurrence: FR)
  Receive Date: 20120615
  Receipt Date: 20130211
  Transmission Date: 20140127
  Serious: Yes (Hospitalization)
  Sender: FDA-Public Use
  Company Number: FR-BIOMARINP-002653

PATIENT
  Age: 4 Year
  Sex: Female
  Weight: 23 kg

DRUGS (1)
  1. KUVAN [Suspect]
     Indication: PHENYLKETONURIA
     Dosage: 40MG,QD
     Route: 042
     Dates: start: 20070101

REACTIONS (1)
  - Laryngitis [Recovered/Resolved]
